FAERS Safety Report 7802947-2 (Version None)
Quarter: 2011Q4

REPORT INFORMATION
  Report Type: 
  Country: None (occurrence: None)
  Receive Date: 20111007
  Receipt Date: 20111003
  Transmission Date: 20120403
  Serious: Yes (Hospitalization, Other)
  Sender: FDA-Public Use
  Company Number: US-B.I. PHARMACEUTICALS,INC./RIDGEFIELD-2011-BP-23413BP

PATIENT
  Sex: Male

DRUGS (5)
  1. CARBIDOPA + LEVODOPA [Concomitant]
     Indication: PARKINSON'S DISEASE
  2. AGGRENOX [Suspect]
     Indication: CEREBROVASCULAR ACCIDENT PROPHYLAXIS
     Route: 048
     Dates: end: 20110901
  3. GALANTAMINE HYDROBROMIDE [Concomitant]
     Indication: AMNESIA
  4. FUROSEMIDE [Concomitant]
  5. ATENOLOL [Concomitant]

REACTIONS (4)
  - HEART RATE DECREASED [None]
  - ATRIAL FIBRILLATION [None]
  - SICK SINUS SYNDROME [None]
  - HYPOTENSION [None]
